FAERS Safety Report 9637366 (Version 2)
Quarter: 2013Q4

REPORT INFORMATION
  Report Type: Spontaneous
  Country: JP (occurrence: JP)
  Receive Date: 20131022
  Receipt Date: 20131101
  Transmission Date: 20140711
  Serious: Yes (Hospitalization)
  Sender: FDA-Public Use
  Company Number: PHHY2013JP118696

PATIENT
  Age: 81 Year
  Sex: Male

DRUGS (3)
  1. TASIGNA [Suspect]
     Indication: CHRONIC MYELOID LEUKAEMIA
     Dosage: 150 MG, DAILY
     Route: 048
     Dates: start: 20130425
  2. TASIGNA [Suspect]
     Dosage: 300 MG, DAILY
     Route: 048
     Dates: start: 20130622, end: 20131014
  3. TASIGNA [Suspect]
     Dosage: 150 MG, DAILY
     Dates: start: 20131016

REACTIONS (1)
  - Angina pectoris [Recovering/Resolving]
